FAERS Safety Report 14112656 (Version 1)
Quarter: 2017Q4

REPORT INFORMATION
  Report Type: Spontaneous
  Country: US (occurrence: US)
  Receive Date: 20171021
  Receipt Date: 20171021
  Transmission Date: 20180321
  Serious: No
  Sender: FDA-Public Use
  Company Number: US-009507513-1709USA012557

PATIENT
  Age: 40 Year
  Sex: Female
  Weight: 80.27 kg

DRUGS (3)
  1. NEXPLANON [Suspect]
     Active Substance: ETONOGESTREL
     Indication: CONTRACEPTION
     Dosage: 1 IMPLANT IN LEFT ARM, FOR 3 YEARS
     Route: 059
     Dates: start: 20140922
  2. TRAMADOL HYDROCHLORIDE. [Concomitant]
     Active Substance: TRAMADOL HYDROCHLORIDE
     Dosage: UNK
  3. BUPROPION HYDROCHLORIDE. [Concomitant]
     Active Substance: BUPROPION HYDROCHLORIDE
     Dosage: UNK

REACTIONS (13)
  - Contusion [Unknown]
  - Fatigue [Unknown]
  - Nervousness [Unknown]
  - Nausea [Unknown]
  - Vulvovaginal inflammation [Unknown]
  - Depressed mood [Unknown]
  - Incorrect drug administration duration [Unknown]
  - Abdominal pain upper [Unknown]
  - Amenorrhoea [Recovered/Resolved]
  - Dizziness [Unknown]
  - Headache [Unknown]
  - Back pain [Unknown]
  - Mood swings [Unknown]

NARRATIVE: CASE EVENT DATE: 20140922
